FAERS Safety Report 7868127-X (Version None)
Quarter: 2011Q4

REPORT INFORMATION
  Report Type: 
  Country: None (occurrence: None)
  Receive Date: 20111028
  Receipt Date: 20111014
  Transmission Date: 20120403
  Serious: Yes (Death, Other)
  Sender: FDA-Public Use
  Company Number: JP-ELI_LILLY_AND_COMPANY-JP201110002857

PATIENT
  Age: 38 Year
  Sex: Male

DRUGS (16)
  1. DORAL [Concomitant]
     Route: 065
  2. TEGRETOL [Concomitant]
     Route: 065
  3. TIMIPERONE [Concomitant]
     Dosage: UNK
     Route: 065
  4. VALPROIC ACID [Concomitant]
     Dosage: UNK
     Route: 065
  5. LODOPIN [Concomitant]
     Route: 065
  6. HALOPERIDOL [Concomitant]
     Dosage: UNK
     Route: 065
  7. PROMAZINE HYDROCHLORIDE [Concomitant]
     Dosage: UNK
     Route: 065
  8. RISPERDAL [Concomitant]
     Dosage: UNK
     Route: 065
  9. PROMETHAZINE HCL [Concomitant]
     Dosage: UNK
     Route: 065
  10. TOLOPELON [Concomitant]
     Dosage: UNK
     Route: 065
  11. SEROQUEL [Concomitant]
     Dosage: UNK
     Route: 065
  12. PHENOBARBITAL TAB [Concomitant]
     Route: 048
  13. ZYPREXA [Suspect]
     Dosage: 20 MG, UNK
     Route: 048
     Dates: start: 20070619, end: 20070620
  14. LEVOMEPROMAZINE MALEATE [Concomitant]
     Route: 065
  15. CLARITHROMYCIN [Concomitant]
     Dosage: UNK
     Route: 065
  16. SLOWHEIM [Concomitant]
     Dosage: UNK
     Route: 065

REACTIONS (4)
  - APALLIC SYNDROME [None]
  - ILEUS [None]
  - CARDIO-RESPIRATORY ARREST [None]
  - RESPIRATORY DEPRESSION [None]
